FAERS Safety Report 20404376 (Version 1)
Quarter: 2022Q1

REPORT INFORMATION
  Report Type: Spontaneous
  Country: CN (occurrence: CN)
  Receive Date: 20220131
  Receipt Date: 20220131
  Transmission Date: 20220423
  Serious: Yes (Life-Threatening, Hospitalization, Other)
  Sender: FDA-Public Use
  Company Number: CN-JNJFOC-20220153723

PATIENT
  Age: 39 Day
  Sex: Female
  Weight: 1.79 kg

DRUGS (2)
  1. MOTRIN INFANTS [Suspect]
     Active Substance: IBUPROFEN
     Indication: Patent ductus arteriosus
     Dosage: WITH URINE VOLUME OF 131ML WITHIN 24 HOURS
     Route: 045
     Dates: start: 20220114, end: 20220114
  2. MOTRIN INFANTS [Suspect]
     Active Substance: IBUPROFEN
     Dosage: SECOND COURSE, WITH URINE VOLUME OF 78ML WITHIN 24 HOURS
     Route: 045
     Dates: start: 20220115, end: 20220115

REACTIONS (2)
  - Urinary retention [Recovering/Resolving]
  - Oedema [Recovering/Resolving]

NARRATIVE: CASE EVENT DATE: 20220116
